FAERS Safety Report 24570187 (Version 1)
Quarter: 2024Q4

REPORT INFORMATION
  Report Type: Spontaneous
  Country: US (occurrence: None)
  Receive Date: 20241031
  Receipt Date: 20241031
  Transmission Date: 20250115
  Serious: Yes (Life-Threatening)
  Sender: Public
  Company Number: None

PATIENT
  Age: 67 Year
  Sex: Female
  Weight: 43.3 kg

DRUGS (1)
  1. PENTAMIDINE [Suspect]
     Active Substance: PENTAMIDINE
     Indication: Transplant
     Dosage: 300 MG ONCE INTRACENOUS DRIP?
     Route: 041
     Dates: start: 20241010, end: 20241010

REACTIONS (2)
  - Anaphylactic shock [None]
  - Infusion related reaction [None]

NARRATIVE: CASE EVENT DATE: 20241010
